FAERS Safety Report 6007190-8 (Version None)
Quarter: 2008Q4

REPORT INFORMATION
  Report Type: 
  Country: None (occurrence: None)
  Receive Date: 20081217
  Receipt Date: 20080221
  Transmission Date: 20090506
  Serious: No
  Sender: FDA-Public Use
  Company Number: US-ASTRAZENECA-2008UW03715

PATIENT
  Age: 80 Year
  Sex: Female
  Weight: 104.3 kg

DRUGS (5)
  1. CRESTOR [Suspect]
     Indication: BLOOD CHOLESTEROL INCREASED
     Route: 048
  2. DIOVAN [Concomitant]
  3. POTASSIUM CHLORIDE [Concomitant]
  4. VITAMIN D [Concomitant]
  5. MULTI-VITAMIN [Concomitant]

REACTIONS (1)
  - OEDEMA PERIPHERAL [None]
